FAERS Safety Report 7284894-0 (Version None)
Quarter: 2011Q1

REPORT INFORMATION
  Report Type: 
  Country: None (occurrence: None)
  Receive Date: 20110204
  Receipt Date: 20110204
  Transmission Date: 20110831
  Serious: Yes (Hospitalization)
  Sender: FDA-Public Use
  Company Number: None

PATIENT
  Sex: Female
  Weight: 69.1 kg

DRUGS (2)
  1. EPZICOM [Suspect]
     Indication: RENAL FAILURE CHRONIC
     Dosage: ONE TAB ORALLY DAILY
     Route: 048
     Dates: start: 20101221, end: 20110124
  2. EPZICOM [Suspect]
     Indication: HIV INFECTION
     Dosage: ONE TAB ORALLY DAILY
     Route: 048
     Dates: start: 20101221, end: 20110124

REACTIONS (1)
  - MYOCARDIAL INFARCTION [None]
